FAERS Safety Report 12568157 (Version 1)
Quarter: 2016Q3

REPORT INFORMATION
  Report Type: Spontaneous
  Country: US (occurrence: US)
  Receive Date: 20160718
  Receipt Date: 20160718
  Transmission Date: 20161109
  Serious: No
  Sender: FDA-Public Use
  Company Number: US-BAXALTA-2016BLT005193

PATIENT
  Age: 42 Year
  Sex: Female

DRUGS (3)
  1. KLONOPIN [Concomitant]
     Active Substance: CLONAZEPAM
     Indication: PRODUCT USED FOR UNKNOWN INDICATION
     Dosage: UNK UNK, 2X A DAY
     Route: 065
  2. HYQVIA [Suspect]
     Active Substance: HUMAN IMMUNOGLOBULIN G\HYALURONIDASE RECOMBINANT HUMAN
     Indication: HYPOGAMMAGLOBULINAEMIA
     Dosage: 30 G, EVERY 4 WK
     Route: 065
     Dates: start: 201602
  3. VALTREX [Concomitant]
     Active Substance: VALACYCLOVIR HYDROCHLORIDE
     Indication: ORAL HERPES
     Route: 065

REACTIONS (9)
  - Blood magnesium decreased [Unknown]
  - Hormone level abnormal [Unknown]
  - Hypovitaminosis [Unknown]
  - Vitamin D abnormal [Unknown]
  - White blood cell count decreased [Unknown]
  - Immunoglobulins abnormal [Unknown]
  - Vitamin E decreased [Unknown]
  - Blood iron decreased [Unknown]
  - Biotin deficiency [Unknown]
